FAERS Safety Report 7946750-1 (Version None)
Quarter: 2011Q4

REPORT INFORMATION
  Report Type: 
  Country: None (occurrence: None)
  Receive Date: 20111129
  Receipt Date: 20111121
  Transmission Date: 20120403
  Serious: Yes (Other)
  Sender: FDA-Public Use
  Company Number: GB-ABBOTT-11P-167-0876753-00

PATIENT
  Sex: Female

DRUGS (1)
  1. HUMIRA [Suspect]
     Indication: PRODUCT USED FOR UNKNOWN INDICATION
     Route: 058
     Dates: start: 20110210

REACTIONS (5)
  - EYE SWELLING [None]
  - LIP SWELLING [None]
  - INJECTION SITE RASH [None]
  - RASH [None]
  - SEASONAL ALLERGY [None]
